FAERS Safety Report 25706522 (Version 1)
Quarter: 2025Q3

REPORT INFORMATION
  Report Type: Spontaneous
  Country: US (occurrence: US)
  Receive Date: 20250820
  Receipt Date: 20250820
  Transmission Date: 20251020
  Serious: No
  Sender: CATALYST PHARMA
  Company Number: US-CATALYST PHARMACEUTICALS-US-CATA-25-00677

PATIENT
  Sex: Male
  Weight: 24.943 kg

DRUGS (8)
  1. AGAMREE [Suspect]
     Active Substance: VAMOROLONE
     Indication: Duchenne muscular dystrophy
     Dosage: 3.2 ML DAILY
     Route: 048
     Dates: start: 20250114, end: 2025
  2. CALCIUM CARBONATE [Concomitant]
     Active Substance: CALCIUM CARBONATE
     Indication: Bone disorder
     Dosage: 1500 MG DAILY
     Route: 065
  3. COENZYME Q10 [Concomitant]
     Active Substance: DIETARY SUPPLEMENT\UBIDECARENONE
     Indication: Cardiovascular disorder
     Dosage: 200 MG DAILY
     Route: 065
  4. DUVYZAT [Concomitant]
     Active Substance: GIVINOSTAT
     Indication: Duchenne muscular dystrophy
     Dosage: TWICE A DAY
     Route: 065
  5. EPLERENONE [Concomitant]
     Active Substance: EPLERENONE
     Indication: Cardiovascular disorder
     Dosage: 25 MG DAILY
     Route: 065
  6. LOSARTAN [Concomitant]
     Active Substance: LOSARTAN
     Indication: Cardiovascular disorder
     Dosage: 50 MG DAILY
     Route: 065
  7. OMEGA 3 [Concomitant]
     Active Substance: CAPSAICIN
     Indication: Cardiovascular disorder
     Dosage: 1000 MG DAILY
     Route: 065
  8. VILTEPSO [Concomitant]
     Active Substance: VILTOLARSEN
     Indication: Duchenne muscular dystrophy
     Dosage: 250 MG WEEKLY
     Route: 042

REACTIONS (1)
  - Mobility decreased [Not Recovered/Not Resolved]

NARRATIVE: CASE EVENT DATE: 20250101
